FAERS Safety Report 11245271 (Version 1)
Quarter: 2015Q3

REPORT INFORMATION
  Report Type: Spontaneous
  Country: FR (occurrence: FR)
  Receive Date: 20150707
  Receipt Date: 20150707
  Transmission Date: 20151125
  Serious: Yes (Hospitalization)
  Sender: FDA-Public Use
  Company Number: FR-ELI_LILLY_AND_COMPANY-FR201506009584

PATIENT
  Age: 80 Year
  Sex: Male

DRUGS (9)
  1. LIPANTHYL [Concomitant]
     Active Substance: FENOFIBRATE
     Dosage: UNK, UNKNOWN
     Route: 065
     Dates: end: 201502
  2. ACTISKENAN [Interacting]
     Active Substance: MORPHINE SULFATE
     Dosage: UP TO 30 MG, QD
     Route: 048
     Dates: start: 20150217, end: 20150223
  3. DEPAKINE CRONO                     /00228502/ [Concomitant]
     Active Substance: VALPROIC ACID
     Dosage: 500 MG, QD
     Route: 065
  4. PREVISCAN (FLUINDIONE) [Concomitant]
     Active Substance: FLUINDIONE
     Dosage: 10 MG, UNKNOWN
     Route: 065
  5. XANAX [Interacting]
     Active Substance: ALPRAZOLAM
     Indication: PRODUCT USED FOR UNKNOWN INDICATION
     Dosage: 0.5 MG, QD
     Route: 048
     Dates: start: 20150218, end: 20150223
  6. CYMBALTA [Suspect]
     Active Substance: DULOXETINE HYDROCHLORIDE
     Indication: PRODUCT USED FOR UNKNOWN INDICATION
     Dosage: 30 MG, QD
     Route: 048
     Dates: start: 20150217, end: 20150223
  7. SKENAN [Interacting]
     Active Substance: MORPHINE SULFATE
     Indication: PRODUCT USED FOR UNKNOWN INDICATION
     Dosage: 10 MG, BID
     Route: 048
     Dates: start: 20150218, end: 20150223
  8. ACTISKENAN [Interacting]
     Active Substance: MORPHINE SULFATE
     Indication: PRODUCT USED FOR UNKNOWN INDICATION
     Dosage: 5 TO 15, QD
     Route: 048
  9. LASILIX                            /00032601/ [Concomitant]
     Active Substance: FUROSEMIDE
     Dosage: 40 MG, QD
     Route: 065
     Dates: end: 201502

REACTIONS (8)
  - Somnolence [Recovered/Resolved]
  - Persecutory delusion [Unknown]
  - International normalised ratio increased [Unknown]
  - Anxiety [Unknown]
  - Language disorder [Unknown]
  - Drug interaction [Unknown]
  - Respiratory depression [Recovered/Resolved]
  - Confusional state [Recovered/Resolved]

NARRATIVE: CASE EVENT DATE: 20150220
